FAERS Safety Report 24321869 (Version 1)
Quarter: 2024Q3

REPORT INFORMATION
  Report Type: Spontaneous
  Country: ES (occurrence: ES)
  Receive Date: 20240916
  Receipt Date: 20240916
  Transmission Date: 20241016
  Serious: Yes (Other)
  Sender: CELLTRION
  Company Number: ES-AMGEN-ESPSP2024054605

PATIENT

DRUGS (4)
  1. ADALIMUMAB [Suspect]
     Active Substance: ADALIMUMAB
     Indication: Crohn^s disease
     Dosage: UNK (REQUIRED INTENSIFICATION)
     Route: 065
  2. ADALIMUMAB [Suspect]
     Active Substance: ADALIMUMAB
     Dosage: UNK
     Route: 065
  3. MESALAMINE [Concomitant]
     Active Substance: MESALAMINE
     Indication: Crohn^s disease
     Dosage: UNK
     Route: 065
  4. MESALAMINE [Concomitant]
     Active Substance: MESALAMINE
     Dosage: UNK (REQUIRED INTENSIFICATION)
     Route: 065

REACTIONS (6)
  - Crohn^s disease [Recovered/Resolved]
  - Bronchiectasis [Recovered/Resolved]
  - Large intestinal stenosis [Recovered/Resolved]
  - Anal abscess [Recovered/Resolved]
  - Actinomycosis [Recovered/Resolved]
  - Drug ineffective [Unknown]
